FAERS Safety Report 24399310 (Version 1)
Quarter: 2024Q4

REPORT INFORMATION
  Report Type: Spontaneous
  Country: US (occurrence: US)
  Receive Date: 20241004
  Receipt Date: 20241004
  Transmission Date: 20250114
  Serious: No
  Sender: ELI LILLY AND CO
  Company Number: US-ELI_LILLY_AND_COMPANY-US202407013471

PATIENT
  Sex: Male

DRUGS (3)
  1. MOUNJARO [Interacting]
     Active Substance: TIRZEPATIDE
     Indication: Product used for unknown indication
     Dosage: UNK, UNKNOWN
     Route: 065
  2. EMTRICITABINE [Interacting]
     Active Substance: EMTRICITABINE
     Indication: HIV test positive
     Dosage: UNK, UNKNOWN
     Route: 065
  3. NEVIRAPINE [Interacting]
     Active Substance: NEVIRAPINE
     Indication: HIV test positive
     Dosage: UNK, UNKNOWN
     Route: 065

REACTIONS (2)
  - Blood HIV RNA increased [Unknown]
  - Drug interaction [Unknown]
